FAERS Safety Report 7622926-8 (Version None)
Quarter: 2011Q3

REPORT INFORMATION
  Report Type: 
  Country: None (occurrence: None)
  Receive Date: 20110720
  Receipt Date: 20110711
  Transmission Date: 20111222
  Serious: Yes (Other)
  Sender: FDA-Public Use
  Company Number: US-BAYER-201039674NA

PATIENT
  Age: 22 Year
  Sex: Female
  Weight: 92.971 kg

DRUGS (15)
  1. DARVOCET [Suspect]
  2. NAPROXEN (ALEVE) [Concomitant]
     Dosage: UNK
     Dates: start: 19990101
  3. YAZ [Suspect]
     Indication: MENSTRUAL CYCLE MANAGEMENT
     Dosage: 1 DF, QD
     Route: 048
     Dates: start: 20060101, end: 20100615
  4. DROSPIRENONE AND ETHINYL ESTRADIOL [Suspect]
     Dosage: UNK
     Dates: start: 20101001
  5. YASMIN [Suspect]
     Indication: MENSTRUAL CYCLE MANAGEMENT
     Dosage: 1 DF, QD
     Route: 048
     Dates: start: 20010101, end: 20030101
  6. AMBIEN [Concomitant]
  7. ORTHO TRI-CYCLEN [Suspect]
  8. LOESTRIN 1.5/30 [Concomitant]
     Indication: CONTRACEPTION
  9. DOXYCYCLINE [Suspect]
  10. YAZ [Suspect]
     Indication: CONTRACEPTION
  11. CYMBALTA [Concomitant]
  12. VALTREX [Concomitant]
  13. DIFLUCAN [Suspect]
  14. NORDETTE-21 [Concomitant]
     Indication: CONTRACEPTION
     Dosage: UNK
     Dates: start: 20071016
  15. ASPIRIN [Concomitant]
     Dosage: UNK
     Dates: start: 19990101

REACTIONS (6)
  - PAIN [None]
  - DIARRHOEA [None]
  - CHOLECYSTITIS [None]
  - ABDOMINAL PAIN UPPER [None]
  - NAUSEA [None]
  - CHOLECYSTITIS CHRONIC [None]
